FAERS Safety Report 4376278-X (Version None)
Quarter: 2004Q2

REPORT INFORMATION
  Report Type: 
  Country: None (occurrence: None)
  Receive Date: 20040608
  Receipt Date: 20030219
  Transmission Date: 20050107
  Serious: Yes (Other)
  Sender: FDA-Public Use
  Company Number: 200310590BCC

PATIENT
  Age: 38 Year
  Sex: Female
  Weight: 97.5234 kg

DRUGS (1)
  1. ALEVE [Suspect]
     Indication: HEADACHE
     Dosage: 220 MG, ONCE, ORAL
     Route: 048
     Dates: start: 20030217

REACTIONS (4)
  - NAUSEA [None]
  - OROPHARYNGEAL SWELLING [None]
  - THROAT IRRITATION [None]
  - VOMITING [None]
